FAERS Safety Report 8035798-7 (Version None)
Quarter: 2012Q1

REPORT INFORMATION
  Report Type: 
  Country: None (occurrence: None)
  Receive Date: 20120111
  Receipt Date: 20120103
  Transmission Date: 20120608
  Serious: Yes (Other)
  Sender: FDA-Public Use
  Company Number: US-BRISTOL-MYERS SQUIBB COMPANY-16325680

PATIENT
  Age: 16 Year
  Sex: Female

DRUGS (15)
  1. CALCITRIOL [Concomitant]
     Dosage: 1DF:2 UNIT NOS
  2. PREDNISONE TAB [Concomitant]
  3. FLEXERIL [Concomitant]
     Indication: FIBROMYALGIA
  4. PRILOSEC [Concomitant]
  5. MORPHINE SULFATE [Concomitant]
     Indication: PAIN
  6. METOPROLOL [Concomitant]
  7. ORENCIA [Suspect]
     Indication: RHEUMATOID ARTHRITIS
     Dosage: FEW YEARS AGO ROUTE:IV,LAST DOSE ON 26DEC11
     Route: 058
  8. XANAX [Concomitant]
  9. SYNTHROID [Concomitant]
  10. PREMPRO [Concomitant]
  11. FOLIC ACID [Concomitant]
  12. TEMAZEPAM [Concomitant]
     Indication: SLEEP DISORDER
  13. METHOTREXATE [Suspect]
  14. TRAMADOL HCL [Concomitant]
  15. CALCIUM ACETATE [Concomitant]
     Dosage: 1DF:4 UNIT NOS

REACTIONS (3)
  - LIP SWELLING [None]
  - RHEUMATOID ARTHRITIS [None]
  - LOSS OF CONSCIOUSNESS [None]
